FAERS Safety Report 8423536-5 (Version None)
Quarter: 2012Q2

REPORT INFORMATION
  Report Type: 
  Country: None (occurrence: None)
  Receive Date: 20120323
  Receipt Date: 20110728
  Transmission Date: 20120825
  Serious: Yes (Hospitalization)
  Sender: FDA-Public Use
  Company Number: 163-21880-11022555

PATIENT
  Age: 76 Year
  Sex: Male
  Weight: 65 kg

DRUGS (5)
  1. LENALIDOMIDE [Suspect]
     Indication: MULTIPLE MYELOMA
     Dosage: 15 MG, DAILY/14 DAYS, PO ; 10 MG, 1 IN 1 D, PO
     Route: 048
     Dates: start: 20110203
  2. LENALIDOMIDE [Suspect]
     Indication: MULTIPLE MYELOMA
     Dosage: 15 MG, DAILY/14 DAYS, PO ; 10 MG, 1 IN 1 D, PO
     Route: 048
     Dates: start: 20110301
  3. DEXAMETHASONE [Concomitant]
  4. ANTIBIOTICS (ANTIBIOTICS) [Concomitant]
  5. VELCADE [Suspect]
     Indication: PRODUCT USED FOR UNKNOWN INDICATION

REACTIONS (2)
  - FEBRILE NEUTROPENIA [None]
  - PANCYTOPENIA [None]
